FAERS Safety Report 7445611-4 (Version None)
Quarter: 2011Q2

REPORT INFORMATION
  Report Type: 
  Country: None (occurrence: None)
  Receive Date: 20110429
  Receipt Date: 20110418
  Transmission Date: 20111010
  Serious: Yes (Hospitalization)
  Sender: FDA-Public Use
  Company Number: BG-SANOFI-AVENTIS-2011SA019705

PATIENT
  Age: 70 Year
  Sex: Male

DRUGS (3)
  1. AMLODIPINE BESYLATE [Concomitant]
  2. PLAVIX [Suspect]
     Route: 048
     Dates: start: 20110201
  3. METOPROLOL SUCCINATE [Concomitant]

REACTIONS (1)
  - GENERALISED OEDEMA [None]
